FAERS Safety Report 13899084 (Version 1)
Quarter: 2017Q3

REPORT INFORMATION
  Report Type: Spontaneous
  Country: US (occurrence: None)
  Receive Date: 20170818
  Receipt Date: 20170818
  Transmission Date: 20171127
  Serious: Yes (Death, Hospitalization)
  Sender: FDA-Public Use
  Company Number: None

PATIENT
  Sex: Male
  Weight: 11.9 kg

DRUGS (4)
  1. METHOTREXATE. [Suspect]
     Active Substance: METHOTREXATE
     Dates: end: 20170804
  2. DEXAMETHASONE. [Suspect]
     Active Substance: DEXAMETHASONE
     Dates: end: 20170808
  3. MERCAPTOPURINE. [Suspect]
     Active Substance: MERCAPTOPURINE
     Dates: end: 20170809
  4. VINCRISTINE SULFATE. [Suspect]
     Active Substance: VINCRISTINE SULFATE
     Dates: end: 20170803

REACTIONS (24)
  - Eye movement disorder [None]
  - Faeces discoloured [None]
  - Lethargy [None]
  - Cardio-respiratory arrest [None]
  - Blood bilirubin increased [None]
  - Malaise [None]
  - Heart rate increased [None]
  - Grunting [None]
  - Hyperkalaemia [None]
  - Unresponsive to stimuli [None]
  - Respiratory acidosis [None]
  - Inflammation [None]
  - Faeces soft [None]
  - Tachypnoea [None]
  - Dyspnoea [None]
  - Metabolic acidosis [None]
  - Hypoglycaemia [None]
  - Aspartate aminotransferase increased [None]
  - Vomiting [None]
  - Abdominal pain upper [None]
  - Epistaxis [None]
  - Blood sodium decreased [None]
  - Alanine aminotransferase increased [None]
  - Pyrexia [None]

NARRATIVE: CASE EVENT DATE: 20170810
